FAERS Safety Report 9687588 (Version 1)
Quarter: 2013Q4

REPORT INFORMATION
  Report Type: Spontaneous
  Country: US (occurrence: None)
  Receive Date: 20131112
  Receipt Date: 20131112
  Transmission Date: 20140711
  Serious: Yes (Other)
  Sender: FDA-Public Use
  Company Number: 2013P1020690

PATIENT
  Age: 70 Year
  Sex: Female

DRUGS (3)
  1. VANCOMYCIN [Suspect]
     Indication: SEPSIS
     Route: 042
  2. PIPERACILLIN/UNKNOWN-UNKNOWN [Concomitant]
  3. TAZOBACTAM [Concomitant]

REACTIONS (1)
  - Linear IgA disease [None]
